FAERS Safety Report 4314390-1 (Version None)
Quarter: 2004Q1

REPORT INFORMATION
  Report Type: 
  Country: None (occurrence: None)
  Receive Date: 20040309
  Receipt Date: 20040102
  Transmission Date: 20041129
  Serious: Yes (Hospitalization)
  Sender: FDA-Public Use
  Company Number: US-GLAXOSMITHKLINE-A0492225A

PATIENT
  Age: 65 Year
  Sex: Female
  Weight: 86.8 kg

DRUGS (12)
  1. AVANDIA [Suspect]
     Indication: DIABETES MELLITUS INSULIN-DEPENDENT
     Dosage: 4MG TWICE PER DAY
     Route: 048
     Dates: start: 19990819, end: 20000201
  2. HUMULIN 70/30 [Concomitant]
     Indication: DIABETES MELLITUS
  3. LASIX [Concomitant]
     Dates: start: 19980505
  4. VIOXX [Concomitant]
  5. PAMELOR [Concomitant]
  6. NORTRIPTYLINE HCL [Concomitant]
  7. DARVOCET [Concomitant]
     Indication: BACK PAIN
  8. FOSAMAX [Concomitant]
     Indication: OSTEOPOROSIS
  9. PREVACID [Concomitant]
  10. MECLIZINE [Concomitant]
  11. CLARITIN-D [Concomitant]
  12. VASOTEC [Concomitant]

REACTIONS (29)
  - BIOPSY LIVER ABNORMAL [None]
  - CARDIAC FAILURE CONGESTIVE [None]
  - CEREBROVASCULAR ACCIDENT [None]
  - CHOLELITHIASIS [None]
  - DIVERTICULUM [None]
  - DYSPNOEA PAROXYSMAL NOCTURNAL [None]
  - FAECAL INCONTINENCE [None]
  - FAECAL OCCULT BLOOD POSITIVE [None]
  - GASTROOESOPHAGEAL REFLUX DISEASE [None]
  - HEPATIC CIRRHOSIS [None]
  - HEPATIC NEOPLASM [None]
  - HEPATITIS [None]
  - HEPATITIS A ANTIBODY POSITIVE [None]
  - HIATUS HERNIA [None]
  - HYPOGLYCAEMIA [None]
  - LIVER DISORDER [None]
  - LOSS OF CONSCIOUSNESS [None]
  - MEMORY IMPAIRMENT [None]
  - OEDEMA [None]
  - OEDEMA PERIPHERAL [None]
  - OESOPHAGITIS [None]
  - ORTHOPNOEA [None]
  - PAROTITIS [None]
  - POLLAKIURIA [None]
  - PULSE ABSENT [None]
  - RASH [None]
  - SYNCOPE [None]
  - URINARY TRACT INFECTION [None]
  - WEIGHT INCREASED [None]
